FAERS Safety Report 5258750-3 (Version None)
Quarter: 2007Q1

REPORT INFORMATION
  Report Type: 
  Country: None (occurrence: None)
  Receive Date: 20070306
  Receipt Date: 20070306
  Transmission Date: 20070707
  Serious: Yes (Hospitalization)
  Sender: FDA-Public Use
  Company Number: None

PATIENT
  Sex: Male
  Weight: 58.8 kg

DRUGS (1)
  1. AZITHROMYCIN [Suspect]
     Indication: PHARYNGITIS

REACTIONS (6)
  - BLISTER [None]
  - LIP SWELLING [None]
  - ORAL SOFT TISSUE DISORDER [None]
  - PARAESTHESIA ORAL [None]
  - SKIN LESION [None]
  - STOMATITIS [None]
